FAERS Safety Report 5574563-7 (Version None)
Quarter: 2007Q4

REPORT INFORMATION
  Report Type: 
  Country: None (occurrence: None)
  Receive Date: 20071227
  Receipt Date: 20071219
  Transmission Date: 20080405
  Serious: Yes (Other)
  Sender: FDA-Public Use
  Company Number: BE-SANOFI-SYNTHELABO-A01200714310

PATIENT
  Sex: Female

DRUGS (1)
  1. ELOXATIN [Suspect]
     Route: 033
     Dates: start: 20071114, end: 20071114

REACTIONS (2)
  - MONOPLEGIA [None]
  - NEUROPATHY PERIPHERAL [None]
